FAERS Safety Report 20336396 (Version 2)
Quarter: 2022Q1

REPORT INFORMATION
  Report Type: Spontaneous
  Country: GB (occurrence: GB)
  Receive Date: 20220114
  Receipt Date: 20220126
  Transmission Date: 20220423
  Serious: Yes (Other)
  Sender: FDA-Public Use
  Company Number: GB-BAYER-2022A005520

PATIENT
  Age: 52 Year
  Sex: Female

DRUGS (2)
  1. MIRENA [Suspect]
     Active Substance: LEVONORGESTREL
     Indication: Endometrial dysplasia
     Dosage: 20?G/DAY
     Route: 015
     Dates: start: 20160315, end: 20160808
  2. ESTRADIOL [Concomitant]
     Active Substance: ESTRADIOL
     Indication: Hormone replacement therapy
     Dosage: 750 ?G, QD

REACTIONS (2)
  - Vulvar dysplasia [Recovered/Resolved]
  - Cervical dysplasia [Recovered/Resolved]

NARRATIVE: CASE EVENT DATE: 20160801
